FAERS Safety Report 5676035-8 (Version None)
Quarter: 2008Q1

REPORT INFORMATION
  Report Type: 
  Country: None (occurrence: None)
  Receive Date: 20080321
  Receipt Date: 20080318
  Transmission Date: 20080703
  Serious: Yes (Death, Hospitalization, Other)
  Sender: FDA-Public Use
  Company Number: PK-ABBOTT-08P-124-0443007-00

PATIENT
  Age: 16 Year
  Sex: Male

DRUGS (3)
  1. CYCLOSPORINE [Suspect]
     Indication: APLASTIC ANAEMIA
     Route: 048
  2. METHYLPREDNISOLONE [Concomitant]
     Indication: APLASTIC ANAEMIA
     Route: 042
  3. ANTILYMPHOCYTE IMMUNOGLOBULIN (HORSE) [Concomitant]
     Indication: APLASTIC ANAEMIA
     Route: 042

REACTIONS (1)
  - RHABDOMYOLYSIS [None]
